FAERS Safety Report 20652803 (Version 6)
Quarter: 2022Q3

REPORT INFORMATION
  Report Type: Spontaneous
  Country: US (occurrence: US)
  Receive Date: 20220330
  Receipt Date: 20220708
  Transmission Date: 20221027
  Serious: Yes (Other)
  Sender: FDA-Public Use
  Company Number: US-UNITED THERAPEUTICS-UNT-2022-004056

PATIENT
  Age: 40 Year
  Sex: Male

DRUGS (3)
  1. REMODULIN [Suspect]
     Active Substance: TREPROSTINIL
     Indication: Pulmonary arterial hypertension
     Dosage: UNK, CONTINUING
     Route: 058
     Dates: start: 20170612
  2. REMODULIN [Suspect]
     Active Substance: TREPROSTINIL
     Dosage: 0.10078 ?G/KG, CONTINUING
     Route: 058
  3. OPSUMIT [Concomitant]
     Active Substance: MACITENTAN
     Indication: Pulmonary arterial hypertension
     Dosage: 10 MG, QD
     Route: 048
     Dates: start: 20210415

REACTIONS (14)
  - Device related infection [Unknown]
  - Infusion site pain [Unknown]
  - Infusion site mass [Recovering/Resolving]
  - Infusion site erythema [Unknown]
  - Infusion site swelling [Unknown]
  - Infusion site infection [Unknown]
  - Impaired healing [Unknown]
  - Catheter site haemorrhage [Recovering/Resolving]
  - Catheter site swelling [Recovering/Resolving]
  - Catheter site erythema [Recovering/Resolving]
  - Catheter site pain [Recovering/Resolving]
  - Infusion site inflammation [Unknown]
  - Infusion site pruritus [Unknown]
  - Device maintenance issue [Recovered/Resolved]

NARRATIVE: CASE EVENT DATE: 20211015
